FAERS Safety Report 8990027 (Version 4)
Quarter: 2013Q1

REPORT INFORMATION
  Report Type: Spontaneous
  Country: IT (occurrence: IT)
  Receive Date: 20121228
  Receipt Date: 20130219
  Transmission Date: 20140127
  Serious: Yes (Other)
  Sender: FDA-Public Use
  Company Number: IT-ABBOTT-12P-083-1025461-00

PATIENT
  Age: 17 Year
  Sex: Female

DRUGS (9)
  1. AKINETON [Suspect]
     Indication: PRODUCT USED FOR UNKNOWN INDICATION
     Route: 048
  2. DEPAKINE CHRONO [Suspect]
     Indication: PRODUCT USED FOR UNKNOWN INDICATION
     Route: 048
  3. TALOFEN [Suspect]
     Indication: CONVERSION DISORDER
     Dosage: 8 DROP DAILY
     Route: 048
     Dates: start: 20120406, end: 20121005
  4. CIPRALEX [Suspect]
     Indication: CONVERSION DISORDER
     Route: 048
     Dates: start: 20120406, end: 20121005
  5. CIPRALEX [Suspect]
     Indication: CONVERSION DISORDER
  6. ABILIFY [Suspect]
     Indication: CONVERSION DISORDER
     Route: 048
     Dates: start: 20120406, end: 20121005
  7. ABILIFY [Suspect]
     Indication: CONVERSION DISORDER
  8. EVRA [Suspect]
     Indication: PRODUCT USED FOR UNKNOWN INDICATION
     Dosage: EVERY OTHER DAY
     Route: 062
     Dates: start: 20121001, end: 20121005
  9. DIAZEPAM [Concomitant]
     Indication: PRODUCT USED FOR UNKNOWN INDICATION

REACTIONS (3)
  - Syncope [Recovering/Resolving]
  - Off label use [Unknown]
  - Mental disorder [Unknown]
